FAERS Safety Report 8270700-4 (Version None)
Quarter: 2012Q2

REPORT INFORMATION
  Report Type: 
  Country: None (occurrence: None)
  Receive Date: 20120410
  Receipt Date: 20120313
  Transmission Date: 20120825
  Serious: Yes (Death)
  Sender: FDA-Public Use
  Company Number: US-ROCHE-1041143

PATIENT
  Sex: Female
  Weight: 60.382 kg

DRUGS (3)
  1. XELODA [Suspect]
  2. XELODA [Suspect]
     Indication: COLON CANCER
     Route: 048
     Dates: start: 20110712, end: 20111220
  3. ELOXATIN [Suspect]
     Indication: COLON CANCER
     Route: 042
     Dates: start: 20111220

REACTIONS (1)
  - DEATH [None]
